FAERS Safety Report 4816582-1 (Version None)
Quarter: 2005Q4

REPORT INFORMATION
  Report Type: 
  Country: None (occurrence: None)
  Receive Date: 20051028
  Receipt Date: 20051011
  Transmission Date: 20060501
  Serious: Yes (Hospitalization)
  Sender: FDA-Public Use
  Company Number: 2005S1008408

PATIENT
  Age: 47 Year
  Sex: Male
  Weight: 86.1834 kg

DRUGS (12)
  1. CLOZAPINE [Suspect]
     Indication: SCHIZOPHRENIA
     Dosage: 25 MG; QAM; PO
     Route: 048
     Dates: start: 20040101
  2. CLOZAPINE [Suspect]
     Dosage: SEE IMAGE
     Route: 048
     Dates: start: 20040101
  3. CLOZAPINE [Suspect]
     Dosage: SEE IMAGE
     Route: 048
     Dates: start: 20040101
  4. STRATTERA [Suspect]
     Indication: ATTENTION DEFICIT/HYPERACTIVITY DISORDER
     Dosage: 25 MG; QD; PO
     Route: 048
     Dates: start: 20050511, end: 20050713
  5. QUETIAPINE FUMARATE [Concomitant]
  6. CYMBALTA [Concomitant]
  7. NICOTINIC ACID [Concomitant]
  8. LORAZEPAM [Concomitant]
  9. CETIRIZINE HCL [Concomitant]
  10. HYDROCHLORIDE [Concomitant]
  11. VALPROATE SODIUM [Concomitant]
  12. ASPIRIN [Concomitant]

REACTIONS (5)
  - GRANULOCYTOPENIA [None]
  - HYPOTENSION [None]
  - NEUTROPENIA [None]
  - PYREXIA [None]
  - WEIGHT DECREASED [None]
